FAERS Safety Report 20479724 (Version 9)
Quarter: 2023Q2

REPORT INFORMATION
  Report Type: Spontaneous
  Country: IN (occurrence: IN)
  Receive Date: 20220216
  Receipt Date: 20230522
  Transmission Date: 20230721
  Serious: Yes (Other)
  Sender: FDA-Public Use
  Company Number: IN-PFIZER INC-202200214991

PATIENT
  Age: 66 Year
  Sex: Female

DRUGS (3)
  1. PALBOCICLIB [Suspect]
     Active Substance: PALBOCICLIB
     Indication: Breast cancer metastatic
     Dosage: 125 MG, 1X/DAY FOR 3 WEEKS FB 1 WEEK OFF X 2 MONTHS
     Route: 048
     Dates: start: 20211103
  2. LETROZOLE [Concomitant]
     Active Substance: LETROZOLE
     Dosage: 2.5 MG (0-1-0)
  3. CALCIUM\CHOLECALCIFEROL [Concomitant]
     Active Substance: CALCIUM\CHOLECALCIFEROL
     Dosage: 500 MG (0-1-0)

REACTIONS (7)
  - Cardiac failure [Recovering/Resolving]
  - Back pain [Recovering/Resolving]
  - White blood cell count decreased [Unknown]
  - Dizziness [Recovered/Resolved]
  - Fatigue [Unknown]
  - Oedema peripheral [Unknown]
  - Gastritis [Unknown]
